FAERS Safety Report 24325334 (Version 1)
Quarter: 2024Q3

REPORT INFORMATION
  Report Type: Report from Study
  Country: US (occurrence: US)
  Receive Date: 20240916
  Receipt Date: 20240916
  Transmission Date: 20241017
  Serious: Yes (Hospitalization, Other)
  Sender: ABBVIE
  Company Number: US-ABBVIE-5917820

PATIENT
  Age: 72 Year
  Sex: Female

DRUGS (1)
  1. IMBRUVICA [Suspect]
     Active Substance: IBRUTINIB
     Indication: Diffuse large B-cell lymphoma
     Route: 048
     Dates: end: 202409

REACTIONS (3)
  - Cardiac failure congestive [Not Recovered/Not Resolved]
  - Brain neoplasm malignant [Unknown]
  - Bone cancer [Unknown]

NARRATIVE: CASE EVENT DATE: 20240901
